FAERS Safety Report 12441256 (Version 1)
Quarter: 2016Q2

REPORT INFORMATION
  Report Type: Report from Study
  Country: FR (occurrence: FR)
  Receive Date: 20160607
  Receipt Date: 20160607
  Transmission Date: 20160815
  Serious: Yes (Other)
  Sender: FDA-Public Use
  Company Number: FR-ALKEM-001690

PATIENT
  Age: 43 Year
  Sex: Female

DRUGS (2)
  1. TACROLIMUS. [Suspect]
     Active Substance: TACROLIMUS
     Indication: RENAL TRANSPLANT
     Dosage: IMMUNOSUPPRESSANT DRUG THERAPY FOR KIDNEY TRANSPLANT
  2. MYCOPHENOLIC ACID. [Suspect]
     Active Substance: MYCOPHENOLIC ACID
     Indication: RENAL TRANSPLANT

REACTIONS (3)
  - Renal tubular atrophy [Unknown]
  - BK virus infection [Recovering/Resolving]
  - Glomerulonephropathy [Unknown]
